FAERS Safety Report 19871594 (Version 2)
Quarter: 2021Q4

REPORT INFORMATION
  Report Type: Spontaneous
  Country: US (occurrence: None)
  Receive Date: 20210923
  Receipt Date: 20211115
  Transmission Date: 20220303
  Serious: No
  Sender: FDA-Public Use
  Company Number: 2021A717466

PATIENT
  Age: 23212 Day
  Sex: Male
  Weight: 129.3 kg

DRUGS (2)
  1. BYDUREON BCISE [Suspect]
     Active Substance: EXENATIDE
     Indication: Glucose tolerance impaired
     Route: 058
  2. BYDUREON [Suspect]
     Active Substance: EXENATIDE
     Indication: Glucose tolerance impaired
     Route: 058

REACTIONS (7)
  - Injection site streaking [Unknown]
  - Injection site haemorrhage [Recovered/Resolved]
  - Cardiac failure congestive [Not Recovered/Not Resolved]
  - Product dose omission issue [Unknown]
  - Device malfunction [Unknown]
  - Device leakage [Unknown]
  - Incorrect dose administered by device [Unknown]

NARRATIVE: CASE EVENT DATE: 20210831
